FAERS Safety Report 7989185-8 (Version None)
Quarter: 2011Q4

REPORT INFORMATION
  Report Type: 
  Country: None (occurrence: None)
  Receive Date: 20111215
  Receipt Date: 20111215
  Transmission Date: 20120403
  Serious: No
  Sender: FDA-Public Use
  Company Number: None

PATIENT

DRUGS (2)
  1. EPHEDRINE EPHEDRINE INJECTABLE INJECTION 50 MG/ML AMPULE 1 ML 17478-51 [Suspect]
     Dosage: 50 MG/ML AMPULE 1 ML  INJECTABLE
  2. VITAMIN K1 PHYTONADIONE INJECTABLE INJECTION 1 MG/0.5 ML AMPULE 0.5 ML [Suspect]
     Dosage: 1 MG/0.5 ML AMPULE 0.5 ML

REACTIONS (2)
  - PRODUCT PACKAGING ISSUE [None]
  - INTERCEPTED DRUG DISPENSING ERROR [None]
